FAERS Safety Report 17636640 (Version 3)
Quarter: 2020Q3

REPORT INFORMATION
  Report Type: Spontaneous
  Country: US (occurrence: US)
  Receive Date: 20200407
  Receipt Date: 20200820
  Transmission Date: 20201102
  Serious: Yes (Other)
  Sender: FDA-Public Use
  Company Number: US-PFIZER INC-2020140946

PATIENT
  Age: 68 Year
  Sex: Female
  Weight: 63.05 kg

DRUGS (1)
  1. PHENYTOIN SODIUM. [Suspect]
     Active Substance: PHENYTOIN SODIUM
     Indication: SEIZURE
     Dosage: UNK

REACTIONS (4)
  - Drug ineffective [Unknown]
  - Scar [Unknown]
  - Amnesia [Unknown]
  - Sleep apnoea syndrome [Unknown]
